FAERS Safety Report 6720192-9 (Version None)
Quarter: 2010Q2

REPORT INFORMATION
  Report Type: 
  Country: None (occurrence: None)
  Receive Date: 20100511
  Receipt Date: 20100504
  Transmission Date: 20101027
  Serious: Yes (Other)
  Sender: FDA-Public Use
  Company Number: US-SANOFI-AVENTIS-2010SA025732

PATIENT
  Age: 53 Year
  Sex: Male

DRUGS (2)
  1. MULTAQ [Suspect]
     Indication: ATRIAL FIBRILLATION
     Route: 048
     Dates: start: 20100429
  2. METOPROLOL TARTRATE [Concomitant]
     Indication: BLOOD PRESSURE

REACTIONS (4)
  - ATRIAL FIBRILLATION [None]
  - FATIGUE [None]
  - HEART RATE INCREASED [None]
  - PALPITATIONS [None]
